FAERS Safety Report 14405907 (Version 2)
Quarter: 2018Q1

REPORT INFORMATION
  Report Type: Spontaneous
  Country: SG (occurrence: SG)
  Receive Date: 20180118
  Receipt Date: 20180122
  Transmission Date: 20180509
  Serious: Yes (Disabling, Other)
  Sender: FDA-Public Use
  Company Number: SG-PFIZER INC-2018021915

PATIENT
  Age: 26 Year
  Sex: Male

DRUGS (4)
  1. FOSCARNET [Concomitant]
     Active Substance: FOSCARNET
     Indication: NECROTISING RETINITIS
     Dosage: INTRAVITREAL INJECTION OF FOSCARNET (2.4 MG/0.1 ML)
  2. METHYLPREDNISOLONE SODIUM SUCCINATE. [Suspect]
     Active Substance: METHYLPREDNISOLONE SODIUM SUCCINATE
     Indication: OPTIC NEURITIS
     Dosage: 1 G, DAILY (1 G FOR 3 DAYS)
     Route: 042
  3. PREDNISOLONE. [Suspect]
     Active Substance: PREDNISOLONE
     Indication: OPTIC NEURITIS
     Dosage: TAPERING DOSE
     Route: 048
  4. METHYLPREDNISOLONE SODIUM SUCCINATE. [Suspect]
     Active Substance: METHYLPREDNISOLONE SODIUM SUCCINATE
     Indication: PAPILLOEDEMA
     Dosage: UNK
     Route: 042

REACTIONS (1)
  - Disease progression [Unknown]
